FAERS Safety Report 5445004-5 (Version None)
Quarter: 2007Q3

REPORT INFORMATION
  Report Type: 
  Country: None (occurrence: None)
  Receive Date: 20070731
  Receipt Date: 20070613
  Transmission Date: 20080115
  Serious: Yes (Hospitalization)
  Sender: FDA-Public Use
  Company Number: US200703001711

PATIENT
  Age: 44 Year
  Sex: Female
  Weight: 75.7 kg

DRUGS (3)
  1. BYETTA [Suspect]
     Indication: TYPE 2 DIABETES MELLITUS
     Dosage: 5 UG, 2/D, SUBCUTANEOUS
     Route: 058
     Dates: start: 20061218, end: 20070320
  2. METFORMIN HCL [Concomitant]
  3. ZELNORM [Concomitant]

REACTIONS (7)
  - ABDOMINAL DISTENSION [None]
  - ABDOMINAL PAIN [None]
  - DIARRHOEA [None]
  - GASTRIC ULCER [None]
  - HAEMORRHAGE [None]
  - NAUSEA [None]
  - VOMITING [None]
